FAERS Safety Report 4961820-8 (Version None)
Quarter: 2006Q2

REPORT INFORMATION
  Report Type: 
  Country: None (occurrence: None)
  Receive Date: 20060404
  Receipt Date: 20060331
  Transmission Date: 20061013
  Serious: Yes (Hospitalization)
  Sender: FDA-Public Use
  Company Number: BR-GLAXOSMITHKLINE-A0600135A

PATIENT
  Age: 6 Year
  Sex: Male
  Weight: 20 kg

DRUGS (1)
  1. ZINNAT [Suspect]
     Indication: TONSILLITIS
     Dosage: 4ML SINGLE DOSE
     Route: 048
     Dates: start: 20060330, end: 20060330

REACTIONS (3)
  - HYPERSENSITIVITY [None]
  - OCULAR HYPERAEMIA [None]
  - URTICARIA [None]
